FAERS Safety Report 25085694 (Version 3)
Quarter: 2025Q2

REPORT INFORMATION
  Report Type: Report from Study
  Country: US (occurrence: US)
  Receive Date: 20250317
  Receipt Date: 20250515
  Transmission Date: 20250716
  Serious: Yes (Other)
  Sender: TAKEDA
  Company Number: US-TAKEDA-2025TUS025890

PATIENT
  Sex: Male

DRUGS (12)
  1. IXAZOMIB [Suspect]
     Active Substance: IXAZOMIB
     Indication: Plasma cell myeloma
  2. ASPIRIN [Concomitant]
     Active Substance: ASPIRIN
  3. VALACYCLOVIR [Concomitant]
     Active Substance: VALACYCLOVIR HYDROCHLORIDE
  4. ALLOPURINOL [Concomitant]
     Active Substance: ALLOPURINOL
  5. DEXAMETHASONE [Concomitant]
     Active Substance: DEXAMETHASONE
  6. ATORVASTATIN [Concomitant]
     Active Substance: ATORVASTATIN
  7. PROMETHAZINE HYDROCHLORIDE [Concomitant]
     Active Substance: PROMETHAZINE HYDROCHLORIDE
  8. AMLODIPINE [Concomitant]
     Active Substance: AMLODIPINE BESYLATE
  9. JANUMET XR [Concomitant]
     Active Substance: METFORMIN HYDROCHLORIDE\SITAGLIPTIN PHOSPHATE
  10. CYANOCOBALAMIN [Concomitant]
     Active Substance: CYANOCOBALAMIN
  11. LOPERAMIDE [Concomitant]
     Active Substance: LOPERAMIDE
  12. LENALIDOMIDE [Concomitant]
     Active Substance: LENALIDOMIDE

REACTIONS (6)
  - Pneumonia [Unknown]
  - Product dose omission issue [Unknown]
  - Product use issue [Unknown]
  - Nausea [Unknown]
  - Platelet count decreased [Unknown]
  - Fatigue [Unknown]
